FAERS Safety Report 8070919-1 (Version None)
Quarter: 2012Q1

REPORT INFORMATION
  Report Type: 
  Country: None (occurrence: None)
  Receive Date: 20120125
  Receipt Date: 20120124
  Transmission Date: 20120608
  Serious: Yes (Other)
  Sender: FDA-Public Use
  Company Number: BR-ROCHE-613232

PATIENT
  Sex: Female
  Weight: 70 kg

DRUGS (14)
  1. MABTHERA [Suspect]
     Dosage: FORM: INFUSION, FREQUENCY REPORTED AS: 2 INFUSIONS
     Route: 042
     Dates: start: 20080916, end: 20081006
  2. DIPYRONE INJ [Concomitant]
  3. MABTHERA [Suspect]
  4. MABTHERA [Suspect]
  5. TANDRILAX [Concomitant]
     Indication: PAIN
  6. MABTHERA [Suspect]
     Indication: RHEUMATOID ARTHRITIS
     Route: 042
     Dates: start: 20071001, end: 20071001
  7. MABTHERA [Suspect]
  8. MABTHERA [Suspect]
  9. MABTHERA [Suspect]
  10. PREDNISONE [Concomitant]
     Dosage: DOSE REPORTED AS: 5 TO 10 MG
  11. OMEPRAZOLE [Concomitant]
  12. PAMELOR [Concomitant]
  13. CLONAZEPAM [Concomitant]
     Route: 048
  14. MABTHERA [Suspect]

REACTIONS (9)
  - PAIN IN EXTREMITY [None]
  - CATARACT [None]
  - RHEUMATOID LUNG [None]
  - COORDINATION ABNORMAL [None]
  - HYPERTENSION [None]
  - HEADACHE [None]
  - ABDOMINAL DISTENSION [None]
  - GASTRITIS [None]
  - ALOPECIA [None]
